FAERS Safety Report 4375895-0 (Version None)
Quarter: 2004Q2

REPORT INFORMATION
  Report Type: 
  Country: None (occurrence: None)
  Receive Date: 20040609
  Receipt Date: 20040609
  Transmission Date: 20050107
  Serious: Yes (Hospitalization)
  Sender: FDA-Public Use
  Company Number: None

PATIENT
  Sex: Female

DRUGS (5)
  1. HUMALOG [Suspect]
     Dosage: 100 UNITS X 1
  2. FUROSEMIDE [Concomitant]
  3. SYNTHROID [Concomitant]
  4. PAMIDRONATE [Concomitant]
  5. LISINOPRIL [Concomitant]

REACTIONS (4)
  - BLOOD GLUCOSE DECREASED [None]
  - DIZZINESS [None]
  - MEDICATION ERROR [None]
  - NAUSEA [None]
